FAERS Safety Report 14664765 (Version 1)
Quarter: 2018Q1

REPORT INFORMATION
  Report Type: Spontaneous
  Country: US (occurrence: US)
  Receive Date: 20180320
  Receipt Date: 20180320
  Transmission Date: 20180509
  Serious: Yes (Other)
  Sender: FDA-Public Use
  Company Number: None

PATIENT
  Age: 92 Year
  Sex: Female
  Weight: 53.1 kg

DRUGS (2)
  1. IRON [Concomitant]
     Active Substance: IRON
  2. LEVOFLOXACIN. [Suspect]
     Active Substance: LEVOFLOXACIN
     Indication: URINARY TRACT INFECTION
     Dosage: ?          QUANTITY:1 CAPSULE(S);?
     Route: 048
     Dates: start: 20180314, end: 20180317

REACTIONS (7)
  - Pain in extremity [None]
  - Weight bearing difficulty [None]
  - Mania [None]
  - Disorganised speech [None]
  - Confusional state [None]
  - Logorrhoea [None]
  - Speech disorder [None]

NARRATIVE: CASE EVENT DATE: 20180317
